FAERS Safety Report 10021958 (Version 2)
Quarter: 2014Q1

REPORT INFORMATION
  Report Type: Spontaneous
  Country: BR (occurrence: BR)
  Receive Date: 20140319
  Receipt Date: 20140319
  Transmission Date: 20141002
  Serious: Yes (Other)
  Sender: FDA-Public Use
  Company Number: BR-PFIZER INC-2014057114

PATIENT
  Age: 47 Year
  Sex: Female

DRUGS (1)
  1. EFEXOR XR [Suspect]
     Indication: FIBROMYALGIA
     Dosage: 75 MG, DAILY (TABLET)
     Route: 048
     Dates: start: 20140221, end: 20140222

REACTIONS (10)
  - Multiple sclerosis [Unknown]
  - Feeling abnormal [Unknown]
  - Malaise [Unknown]
  - Migraine [Unknown]
  - Cold sweat [Unknown]
  - Erythema [Unknown]
  - Oral mucosal exfoliation [Unknown]
  - Thirst [Unknown]
  - Oral discomfort [Not Recovered/Not Resolved]
  - Off label use [Recovered/Resolved]
